FAERS Safety Report 5953089-2 (Version None)
Quarter: 2008Q4

REPORT INFORMATION
  Report Type: 
  Country: None (occurrence: None)
  Receive Date: 20081114
  Receipt Date: 20080428
  Transmission Date: 20090506
  Serious: No
  Sender: FDA-Public Use
  Company Number: US-BRISTOL-MYERS SQUIBB COMPANY-14135289

PATIENT
  Age: 66 Year
  Sex: Female
  Weight: 100 kg

DRUGS (13)
  1. GLUCOPHAGE XR [Suspect]
     Indication: DIABETES MELLITUS
     Dosage: REDUCED TO 2 TABLETS PER DAY AFTER NAIL DISORDER BY THE PATIENT
     Route: 048
     Dates: start: 20071011, end: 20080325
  2. INSULIN GLARGINE [Concomitant]
  3. ASPIRIN [Concomitant]
  4. GLIPIZIDE [Concomitant]
  5. MICARDIS [Concomitant]
  6. DETROL LA [Concomitant]
  7. METOPROLOL TARTRATE [Concomitant]
  8. HYDROCHLOROTHIAZIDE [Concomitant]
  9. LEVOTHYROXINE SODIUM [Concomitant]
  10. CALCIUM [Concomitant]
  11. VITAMIN D [Concomitant]
  12. SIMVASTATIN [Concomitant]
  13. OMEPRAZOLE [Concomitant]

REACTIONS (3)
  - ABDOMINAL DISCOMFORT [None]
  - NAIL DISORDER [None]
  - SKIN DISCOMFORT [None]
